FAERS Safety Report 7195654 (Version 3)
Quarter: 2020Q3

REPORT INFORMATION
  Report Type: Report from Study
  Country: BR (occurrence: BR)
  Receive Date: 20091201
  Receipt Date: 20100507
  Transmission Date: 20201104
  Serious: Yes (Hospitalization)
  Sender: FDA-Public Use
  Company Number: BR-WYE-H12296509

PATIENT
  Age: 54 Year
  Sex: Male
  Weight: 65.5 kg

DRUGS (3)
  1. TYLEX [ACETAMINOPHEN\CARBINOXAMINE MALEATE\PHENYLEPHRINE HYDROCHLORIDE] [Concomitant]
     Active Substance: ACETAMINOPHEN\CARBINOXAMINE MALEATE\PHENYLEPHRINE HYDROCHLORIDE
     Indication: PAIN
     Dosage: NOT PROVIDED
     Route: 065
     Dates: start: 20091015
  2. AVASTIN [Suspect]
     Active Substance: BEVACIZUMAB
     Indication: METASTATIC RENAL CELL CARCINOMA
     Route: 042
     Dates: start: 20091030, end: 20091120
  3. INTERFERON ALFA NOS [Suspect]
     Active Substance: INTERFERON ALFA-2A OR INTERFERON ALFA-2B
     Indication: METASTATIC RENAL CELL CARCINOMA
     Dosage: 9 MU THREE TIMES PER WEEK
     Route: 058
     Dates: start: 20091030, end: 20091120

REACTIONS (1)
  - Anaemia [Recovered/Resolved]

NARRATIVE: CASE EVENT DATE: 20091120
